FAERS Safety Report 19463666 (Version 1)
Quarter: 2021Q2

REPORT INFORMATION
  Report Type: Spontaneous
  Country: US (occurrence: US)
  Receive Date: 20210625
  Receipt Date: 20210625
  Transmission Date: 20210717
  Serious: Yes (Hospitalization)
  Sender: FDA-Public Use
  Company Number: US-ROCHE-2855994

PATIENT
  Sex: Male

DRUGS (13)
  1. HYDROCORT [Concomitant]
  2. FUROSEMIDE. [Concomitant]
     Active Substance: FUROSEMIDE
  3. PREDNISONE. [Concomitant]
     Active Substance: PREDNISONE
  4. SANDIMMUNE [Concomitant]
     Active Substance: CYCLOSPORINE
  5. CEPHALEXIN. [Concomitant]
     Active Substance: CEPHALEXIN
  6. DICLOFENAC [Concomitant]
     Active Substance: DICLOFENAC
  7. XARELTO [Concomitant]
     Active Substance: RIVAROXABAN
  8. FOSFOMYCIN [Concomitant]
     Active Substance: FOSFOMYCIN
  9. AMLODIPINE [Concomitant]
     Active Substance: AMLODIPINE BESYLATE
  10. LOSARTAN POTASSIUM. [Concomitant]
     Active Substance: LOSARTAN POTASSIUM
  11. ROSUVASTATIN. [Concomitant]
     Active Substance: ROSUVASTATIN
  12. FLUOROURACIL. [Concomitant]
     Active Substance: FLUOROURACIL
  13. ESBRIET [Suspect]
     Active Substance: PIRFENIDONE
     Indication: IDIOPATHIC PULMONARY FIBROSIS
     Route: 048
     Dates: start: 20150528

REACTIONS (2)
  - Dyspnoea [Unknown]
  - Gait disturbance [Unknown]
